FAERS Safety Report 5663128-4 (Version None)
Quarter: 2008Q1

REPORT INFORMATION
  Report Type: 
  Country: None (occurrence: None)
  Receive Date: 20080313
  Receipt Date: 20080307
  Transmission Date: 20080703
  Serious: Yes (Death, Hospitalization)
  Sender: FDA-Public Use
  Company Number: B0511624A

PATIENT
  Age: 67 Year
  Sex: Female

DRUGS (7)
  1. ARIXTRA [Suspect]
     Indication: DRUG USE FOR UNKNOWN INDICATION
     Dosage: 2.5MG PER DAY
     Route: 058
     Dates: end: 20080127
  2. CORDARONE [Suspect]
     Indication: DRUG USE FOR UNKNOWN INDICATION
     Dosage: 200MG PER DAY
     Route: 048
     Dates: start: 20040101, end: 20080123
  3. PLAVIX [Suspect]
     Indication: DRUG USE FOR UNKNOWN INDICATION
     Dosage: 79MG PER DAY
     Route: 048
     Dates: start: 20070601, end: 20080124
  4. KARDEGIC [Suspect]
     Indication: DRUG USE FOR UNKNOWN INDICATION
     Dosage: 75MG PER DAY
     Route: 048
     Dates: end: 20080124
  5. LEVOTHYROX [Concomitant]
     Route: 065
  6. NOVORAPID [Concomitant]
     Route: 065
  7. NOVOLOG MIX 70/30 [Concomitant]
     Route: 065

REACTIONS (6)
  - ABDOMINAL DISTENSION [None]
  - ABDOMINAL PAIN [None]
  - ABDOMINAL RIGIDITY [None]
  - HEPATITIS [None]
  - MYOCARDIAL ISCHAEMIA [None]
  - RENAL FAILURE [None]
